FAERS Safety Report 26043052 (Version 1)
Quarter: 2025Q4

REPORT INFORMATION
  Report Type: Spontaneous
  Country: US (occurrence: US)
  Receive Date: 20251113
  Receipt Date: 20251113
  Transmission Date: 20260117
  Serious: No
  Sender: ANI
  Company Number: US-ANIPHARMA-2025-US-048581

PATIENT
  Age: 75 Year
  Sex: Female
  Weight: 83.92 kg

DRUGS (17)
  1. CORTICOTROPIN [Suspect]
     Active Substance: CORTICOTROPIN
     Indication: Rheumatoid arthritis
     Dosage: 1 INJECTION TWICE WEEKLY, ON SUNDAYS OR MONDAYS AND EVERY THURSDAY
     Route: 058
     Dates: start: 20250904
  2. PAXIL CR [Concomitant]
     Active Substance: PAROXETINE HYDROCHLORIDE
     Dosage: 25 MG DAILY
  3. Plavis [Concomitant]
     Dosage: 75 MG DAILY
  4. XYLITOL [Concomitant]
     Active Substance: XYLITOL
     Dosage: SWISH AND SWALLOW AT BEDTIME PRN
  5. TRILEPTAL [Concomitant]
     Active Substance: OXCARBAZEPINE
     Dosage: 900 MG DAILY
  6. GABAPENTIN [Concomitant]
     Active Substance: GABAPENTIN
     Dosage: 800 MG DAILY
  7. VALTREX [Concomitant]
     Active Substance: VALACYCLOVIR HYDROCHLORIDE
     Dosage: 500 MG PRN
  8. TYLENOL [Concomitant]
     Active Substance: ACETAMINOPHEN
     Dosage: 500 MG PRN AT BEDTIME
  9. VITAMIN B12 [Concomitant]
     Active Substance: CYANOCOBALAMIN
     Dosage: DAILY
  10. NORCO [Concomitant]
     Active Substance: ACETAMINOPHEN\HYDROCODONE BITARTRATE
     Dosage: 10 MG QID
  11. COREG [Concomitant]
     Active Substance: CARVEDILOL
     Dosage: 6.25MG BID
  12. LOZOL [Concomitant]
     Active Substance: INDAPAMIDE
     Dosage: 1.25 MG DAILY
  13. ALDACTONE [Concomitant]
     Active Substance: SPIRONOLACTONE
     Dosage: 12.5 MG IN THE MORNING
  14. LIPITOR [Concomitant]
     Active Substance: ATORVASTATIN CALCIUM
     Dosage: 40 MG DAILY
  15. TRICOR [Concomitant]
     Active Substance: FENOFIBRATE
     Dosage: 125 MG DAILY
  16. REMERON [Concomitant]
     Active Substance: MIRTAZAPINE
     Dosage: 30 MG DAILY
  17. SEROQUEL [Concomitant]
     Active Substance: QUETIAPINE FUMARATE
     Dosage: 250 MG DAILY

REACTIONS (2)
  - Gingival bleeding [Recovered/Resolved]
  - Contraindicated product administered [Unknown]

NARRATIVE: CASE EVENT DATE: 20250904
